FAERS Safety Report 4757388-1 (Version None)
Quarter: 2005Q3

REPORT INFORMATION
  Report Type: 
  Country: None (occurrence: None)
  Receive Date: 20050829
  Receipt Date: 20050823
  Transmission Date: 20060218
  Serious: Yes (Life-Threatening, Hospitalization)
  Sender: FDA-Public Use
  Company Number: 200420921BWH

PATIENT
  Age: 34 Year
  Sex: Female

DRUGS (3)
  1. AVELOX [Suspect]
     Indication: PNEUMONIA
     Dosage: 400 MG, QD, ORAL
     Route: 048
     Dates: start: 20041018, end: 20041019
  2. ZYRTEC [Concomitant]
  3. ZITHROMAX [Concomitant]

REACTIONS (14)
  - ANTI-PLATELET ANTIBODY POSITIVE [None]
  - BACTERIA URINE [None]
  - BLOOD URINE PRESENT [None]
  - GINGIVAL BLEEDING [None]
  - HAEMATEMESIS [None]
  - HEPATITIS A ANTIBODY POSITIVE [None]
  - IDIOPATHIC THROMBOCYTOPENIC PURPURA [None]
  - IMMUNE SYSTEM DISORDER [None]
  - LYMPHOCYTE PERCENTAGE DECREASED [None]
  - MONOCYTE PERCENTAGE DECREASED [None]
  - PROTEIN URINE [None]
  - THERAPY NON-RESPONDER [None]
  - THROMBOCYTOPENIA [None]
  - THROMBOCYTOPENIC PURPURA [None]
